FAERS Safety Report 26004932 (Version 2)
Quarter: 2025Q4

REPORT INFORMATION
  Report Type: Spontaneous
  Country: EU (occurrence: EU)
  Receive Date: 20251106
  Receipt Date: 20251117
  Transmission Date: 20260117
  Serious: Yes (Other)
  Sender: LEO PHARM
  Company Number: EU-LEO Pharma-383855

PATIENT
  Age: 27 Year
  Sex: Female
  Weight: 44 kg

DRUGS (10)
  1. ADBRY [Suspect]
     Active Substance: TRALOKINUMAB-LDRM
     Indication: Dermatitis atopic
     Dosage: ADTRALZA WAS ADMINISTER FOR APPROXIMATELY 5 WEEKS; ONGOING TREATMENT
     Route: 058
     Dates: start: 20251006
  2. ADBRY [Suspect]
     Active Substance: TRALOKINUMAB-LDRM
     Indication: Dermatitis atopic
     Dosage: ADTRALZA WAS ADMINISTER FOR APPROXIMATELY 5 WEEKS; ONGOING TREATMENT
     Route: 058
     Dates: start: 20251006
  3. PAROXETINE [Concomitant]
     Active Substance: PAROXETINE
     Indication: Panic disorder
     Dosage: NO POSOLOGY INFORMATION REPORTED
     Dates: start: 202507
  4. PAROXETINE [Concomitant]
     Active Substance: PAROXETINE
     Indication: Anxiety
     Dosage: NO POSOLOGY INFORMATION REPORTED
     Dates: start: 202507
  5. PANTOPRAZOLE SODIUM [Concomitant]
     Active Substance: PANTOPRAZOLE SODIUM
     Indication: Gastrointestinal disorder
     Dosage: NO POSOLOGY INFORMATION REPORTED
     Dates: start: 202509
  6. PREGABALIN [Concomitant]
     Active Substance: PREGABALIN
     Indication: Herpes zoster
     Dosage: CURRENTLY BEING TAPERED OFF ?NO POSOLOGY INFO REPORTED?CURRENTLY BEING TAPERED OFF DUE TO THE OCCURR
  7. METHOTREXATE SODIUM [Concomitant]
     Active Substance: METHOTREXATE SODIUM
     Indication: Rheumatoid arthritis
     Dosage: NO POSOLOGY INFO REPORTED
     Dates: start: 2021
  8. METHOTREXATE SODIUM [Concomitant]
     Active Substance: METHOTREXATE SODIUM
     Indication: Collagen disorder
     Dosage: NO POSOLOGY INFO REPORTED
     Dates: start: 2021
  9. HYDROXYCHLOROQUINE SULFATE [Concomitant]
     Active Substance: HYDROXYCHLOROQUINE SULFATE
     Indication: Collagen disorder
     Dosage: NO POSOLOGY INFORMATION REPORTED
     Dates: start: 2021
  10. HYDROXYCHLOROQUINE SULFATE [Concomitant]
     Active Substance: HYDROXYCHLOROQUINE SULFATE
     Indication: Rheumatoid arthritis
     Dosage: NO POSOLOGY INFORMATION REPORTED
     Dates: start: 2021

REACTIONS (2)
  - Deep vein thrombosis [Not Recovered/Not Resolved]
  - Pulmonary embolism [Unknown]

NARRATIVE: CASE EVENT DATE: 20251026
